FAERS Safety Report 9222618 (Version 1)
Quarter: 2013Q1

REPORT INFORMATION
  Report Type: Spontaneous
  Country: US (occurrence: US)
  Receive Date: 20120914
  Receipt Date: 20120914
  Transmission Date: 20140127
  Serious: Yes (Other)
  Sender: FDA-Public Use
  Company Number: JPI-P-021485

PATIENT
  Age: 75 Year
  Sex: Female
  Weight: 58.97 kg

DRUGS (7)
  1. XYREM [Suspect]
     Indication: CATAPLEXY
     Dosage: TWO DOSES OF 1.5 GM TAKEN NIGHTLY/AT BEDTIME.
     Route: 048
     Dates: start: 20120507, end: 20120511
  2. HYDRALAZINE [Concomitant]
  3. PAROXETINE HYDROCHLORIDE [Concomitant]
  4. ESOMEPRAZOLE MAGNESIUM [Concomitant]
  5. DARIFENACIN [Concomitant]
  6. CLOPIDOGREL BISULFATE [Concomitant]
  7. VITAMIN D [Concomitant]

REACTIONS (6)
  - Blood pressure increased [None]
  - Condition aggravated [None]
  - Feeling cold [None]
  - Depression [None]
  - Nausea [None]
  - Nasopharyngitis [None]
